FAERS Safety Report 8718293 (Version 2)
Quarter: 2012Q4

REPORT INFORMATION
  Report Type: 
  Country: US (occurrence: US)
  Receive Date: 20120810
  Receipt Date: 20121109
  Transmission Date: 20130627
  Serious: No
  Sender: FDA-Public Use
  Company Number: US-009507513-1208USA003839

PATIENT
  Age: 39 Year
  Sex: Male
  Weight: 61.22 kg

DRUGS (2)
  1. CLARITIN LIQUIGELS [Suspect]
     Indication: SEASONAL ALLERGY
     Dosage: 10 mg, qd
     Route: 048
     Dates: start: 20120411, end: 20120426
  2. CLARITIN LIQUIGELS [Suspect]
     Dosage: 10 mg, qd
     Route: 048
     Dates: start: 201207

REACTIONS (1)
  - Drug ineffective [Unknown]
